FAERS Safety Report 11112127 (Version 1)
Quarter: 2015Q2

REPORT INFORMATION
  Report Type: Spontaneous
  Country: US (occurrence: US)
  Receive Date: 20150514
  Receipt Date: 20150514
  Transmission Date: 20150821
  Serious: Yes (Other)
  Sender: FDA-Public Use
  Company Number: US-ACTAVIS-2015-09564

PATIENT
  Sex: Female

DRUGS (1)
  1. OXYMORPHONE HYDROCHLORIDE (AELLC) [Suspect]
     Active Substance: OXYMORPHONE HYDROCHLORIDE
     Indication: PRODUCT USED FOR UNKNOWN INDICATION
     Dosage: UNK, UNKNOWN
     Route: 065

REACTIONS (3)
  - Hallucination, auditory [Unknown]
  - Hallucination, visual [Unknown]
  - Drug dispensing error [Unknown]
